FAERS Safety Report 5112474-1 (Version None)
Quarter: 2006Q3

REPORT INFORMATION
  Report Type: 
  Country: None (occurrence: None)
  Receive Date: 20060922
  Receipt Date: 20051031
  Transmission Date: 20061208
  Serious: Yes (Death)
  Sender: FDA-Public Use
  Company Number: US-BRISTOL-MYERS SQUIBB COMPANY-13163035

PATIENT
  Age: 84 Year
  Sex: Female

DRUGS (1)
  1. MEGACE [Suspect]

REACTIONS (1)
  - MALIGNANT NEOPLASM PROGRESSION [None]
